FAERS Safety Report 5386535-6 (Version None)
Quarter: 2007Q3

REPORT INFORMATION
  Report Type: 
  Country: None (occurrence: None)
  Receive Date: 20070713
  Receipt Date: 20070702
  Transmission Date: 20080115
  Serious: Yes (Other)
  Sender: FDA-Public Use
  Company Number: US-ASTRAZENECA-2007UW01951

PATIENT
  Age: 16591 Day
  Sex: Male
  Weight: 102.3 kg

DRUGS (25)
  1. SEROQUEL [Suspect]
     Indication: DEPRESSION
     Route: 048
     Dates: start: 20010403
  2. SEROQUEL [Suspect]
     Indication: ANXIETY
     Route: 048
     Dates: start: 20010403
  3. SEROQUEL [Suspect]
     Indication: SUICIDAL IDEATION
     Route: 048
     Dates: start: 20010403
  4. SEROQUEL [Suspect]
     Dosage: 25 TO 100 MG
     Route: 048
     Dates: start: 20020131, end: 20020708
  5. SEROQUEL [Suspect]
     Dosage: 25 TO 100 MG
     Route: 048
     Dates: start: 20020131, end: 20020708
  6. SEROQUEL [Suspect]
     Dosage: 25 TO 100 MG
     Route: 048
     Dates: start: 20020131, end: 20020708
  7. SEROQUEL [Suspect]
     Dosage: 25 TO 100 MG
     Route: 048
     Dates: start: 20050103, end: 20050901
  8. SEROQUEL [Suspect]
     Dosage: 25 TO 100 MG
     Route: 048
     Dates: start: 20050103, end: 20050901
  9. SEROQUEL [Suspect]
     Dosage: 25 TO 100 MG
     Route: 048
     Dates: start: 20050103, end: 20050901
  10. SEROQUEL [Suspect]
     Route: 048
     Dates: start: 20050930, end: 20051030
  11. SEROQUEL [Suspect]
     Route: 048
     Dates: start: 20050930, end: 20051030
  12. SEROQUEL [Suspect]
     Route: 048
     Dates: start: 20050930, end: 20051030
  13. SEROQUEL [Suspect]
     Route: 048
     Dates: start: 20051101, end: 20051123
  14. SEROQUEL [Suspect]
     Route: 048
     Dates: start: 20051101, end: 20051123
  15. SEROQUEL [Suspect]
     Route: 048
     Dates: start: 20051101, end: 20051123
  16. THORAZINE [Concomitant]
     Dates: start: 19910101, end: 20050101
  17. WELLBUTRIN [Concomitant]
  18. VICODIN [Concomitant]
  19. ZOLOFT [Concomitant]
  20. BUSPAR [Concomitant]
  21. CELEXA [Concomitant]
  22. LITHIUM CARBONATE [Concomitant]
     Route: 048
     Dates: start: 20050601, end: 20050809
  23. PAXIL [Concomitant]
     Route: 048
     Dates: start: 20050930, end: 20060208
  24. TOFRANIL [Concomitant]
     Dates: start: 20050307
  25. PAMELOR [Concomitant]
     Dates: end: 20050609

REACTIONS (5)
  - FALL [None]
  - HAEMATOCHEZIA [None]
  - HEPATITIS C [None]
  - SUICIDE ATTEMPT [None]
  - TYPE 2 DIABETES MELLITUS [None]
